FAERS Safety Report 4442928-2 (Version None)
Quarter: 2004Q3

REPORT INFORMATION
  Report Type: 
  Country: None (occurrence: None)
  Receive Date: 20040728
  Receipt Date: 20040520
  Transmission Date: 20050211
  Serious: No
  Sender: FDA-Public Use
  Company Number: USA040567587

PATIENT
  Age: 49 Year
  Sex: Female
  Weight: 64 kg

DRUGS (7)
  1. STRATTERA [Suspect]
     Indication: ATTENTION DEFICIT/HYPERACTIVITY DISORDER
     Dosage: 80 MG DAY
     Dates: start: 20040510
  2. RITALIN [Concomitant]
  3. ADDERALL 10 [Concomitant]
  4. DEXEDRINE (DEXAMFETAMINE SULFATE) [Concomitant]
  5. CENTRUM [Concomitant]
  6. JUICE PLUS (HOMEOPATHIC AGENT) [Concomitant]
  7. TOFRANIL [Concomitant]

REACTIONS (6)
  - ANXIETY [None]
  - DRY MOUTH [None]
  - DYSMENORRHOEA [None]
  - HEART RATE INCREASED [None]
  - MENSTRUAL DISORDER [None]
  - NAUSEA [None]
